FAERS Safety Report 9850361 (Version 1)
Quarter: 2014Q1

REPORT INFORMATION
  Report Type: Spontaneous
  Country: BR (occurrence: BR)
  Receive Date: 20140128
  Receipt Date: 20140128
  Transmission Date: 20141002
  Serious: Yes (Death, Other)
  Sender: FDA-Public Use
  Company Number: BR-BAXTER-2014BAX003156

PATIENT
  Age: 53 Year
  Sex: Male

DRUGS (4)
  1. GENUXAL [Suspect]
     Indication: RHEUMATOID ARTHRITIS
     Route: 048
  2. METHYLPREDNISOLONE [Concomitant]
     Indication: RHEUMATOID ARTHRITIS
     Dosage: FOR THREE DAYS
     Route: 042
  3. PREDNISONE [Concomitant]
     Indication: RHEUMATOID ARTHRITIS
     Route: 048
  4. CEFTRIAXONE [Concomitant]
     Indication: MENINGITIS
     Dosage: FOR 10 DAYS

REACTIONS (4)
  - Sepsis [Fatal]
  - Meningitis [Unknown]
  - Cutaneous vasculitis [Unknown]
  - Pneumonia aspiration [Unknown]
